FAERS Safety Report 6490775-2 (Version None)
Quarter: 2009Q4

REPORT INFORMATION
  Report Type: 
  Country: None (occurrence: None)
  Receive Date: 20091211
  Receipt Date: 20091203
  Transmission Date: 20100525
  Serious: Yes (Other)
  Sender: FDA-Public Use
  Company Number: US-JNJFOC-20090902210

PATIENT
  Sex: Female
  Weight: 42.18 kg

DRUGS (7)
  1. DURAGESIC-100 [Suspect]
     Route: 062
  2. DURAGESIC-100 [Suspect]
     Indication: FIBROMYALGIA
     Route: 062
  3. CANNABIS [Suspect]
     Indication: DRUG ABUSE
     Route: 065
  4. AMBIEN [Concomitant]
     Indication: SLEEP DISORDER
     Route: 048
  5. SOMA [Concomitant]
     Indication: MUSCLE SPASMS
     Route: 048
  6. DIAZEPAM [Concomitant]
     Indication: ANXIETY
     Route: 048
  7. LORTAB [Concomitant]
     Indication: PAIN
     Route: 048

REACTIONS (5)
  - BLOOD CHOLESTEROL INCREASED [None]
  - DRUG SCREEN NEGATIVE [None]
  - HORMONE LEVEL ABNORMAL [None]
  - HYPOTHYROIDISM [None]
  - PAIN [None]
